FAERS Safety Report 6748478-2 (Version None)
Quarter: 2010Q2

REPORT INFORMATION
  Report Type: 
  Country: None (occurrence: None)
  Receive Date: 20100527
  Receipt Date: 20100527
  Transmission Date: 20101027
  Serious: Yes (Hospitalization)
  Sender: FDA-Public Use
  Company Number: None

PATIENT
  Age: 80 Year
  Sex: Male

DRUGS (1)
  1. DIVALPROEX SODIUM [Suspect]
     Indication: CONVULSION
     Dosage: 1000MG 500MG BID ATIZN PO
     Route: 048
     Dates: start: 20071101

REACTIONS (3)
  - ATAXIA [None]
  - DECREASED APPETITE [None]
  - NAUSEA [None]
